FAERS Safety Report 21487874 (Version 1)
Quarter: 2022Q4

REPORT INFORMATION
  Report Type: Spontaneous
  Country: DE (occurrence: None)
  Receive Date: 20221020
  Receipt Date: 20221020
  Transmission Date: 20230113
  Serious: Yes (Death)
  Sender: FDA-Public Use
  Company Number: 2022A347952

PATIENT
  Age: 59 Year
  Sex: Female

DRUGS (2)
  1. FASLODEX [Suspect]
     Active Substance: FULVESTRANT
     Indication: Breast cancer metastatic
     Route: 030
  2. PALBOCICLIB [Suspect]
     Active Substance: PALBOCICLIB
     Indication: Breast cancer metastatic
     Route: 065

REACTIONS (5)
  - Neoplasm progression [Fatal]
  - Muscular weakness [Unknown]
  - Vision blurred [Unknown]
  - Back pain [Unknown]
  - Headache [Unknown]
